FAERS Safety Report 25509775 (Version 3)
Quarter: 2025Q3

REPORT INFORMATION
  Report Type: Spontaneous
  Country: JP (occurrence: JP)
  Receive Date: 20250703
  Receipt Date: 20250813
  Transmission Date: 20251020
  Serious: Yes (Disabling)
  Sender: ALEXION PHARMACEUTICALS
  Company Number: JP-ASTRAZENECA-202506JPN026491JP

PATIENT
  Age: 87 Year
  Sex: Male
  Weight: 42 kg

DRUGS (1)
  1. ANDEXXA [Suspect]
     Active Substance: ANDEXANET ALFA
     Indication: Haemorrhage
     Dates: start: 20250613, end: 20250613

REACTIONS (2)
  - Basilar artery occlusion [Recovered/Resolved with Sequelae]
  - Altered state of consciousness [Recovered/Resolved with Sequelae]

NARRATIVE: CASE EVENT DATE: 20250614
